FAERS Safety Report 9664462 (Version 1)
Quarter: 2013Q4

REPORT INFORMATION
  Report Type: Spontaneous
  Country: US (occurrence: None)
  Receive Date: 20131030
  Receipt Date: 20131030
  Transmission Date: 20140711
  Serious: Yes (Other)
  Sender: FDA-Public Use
  Company Number: None

PATIENT
  Age: 57 None
  Sex: Male

DRUGS (1)
  1. AFINITOR [Suspect]
     Route: 048
     Dates: start: 20130921

REACTIONS (1)
  - Anaemia [None]
